FAERS Safety Report 21286819 (Version 1)
Quarter: 2022Q3

REPORT INFORMATION
  Report Type: Spontaneous
  Country: US (occurrence: US)
  Receive Date: 20220902
  Receipt Date: 20220902
  Transmission Date: 20221027
  Serious: Yes (Hospitalization)
  Sender: FDA-Public Use
  Company Number: US-MYLANLABS-2022M1090362

PATIENT
  Age: 46 Year
  Sex: Female

DRUGS (3)
  1. DEXAMETHASONE [Suspect]
     Active Substance: DEXAMETHASONE
     Indication: Cystoid macular oedema
     Dosage: 0.7 MILLIGRAM, INTRA-VITREOUS (DOSAGE TEXT: SHE WAS INJECTED WITH 0.7MG INTRA-VITREOUS DEXAMETHASONE
     Route: 065
  2. LIDOCAINE [Concomitant]
     Active Substance: LIDOCAINE
     Indication: Local anaesthesia
     Dosage: UNK
     Route: 057
  3. ASTODRIMER [Concomitant]
     Active Substance: ASTODRIMER
     Indication: Infection prophylaxis
     Dosage: UNK
     Route: 065

REACTIONS (2)
  - Corneal oedema [Unknown]
  - Device dislocation [Recovered/Resolved]
